FAERS Safety Report 15232569 (Version 2)
Quarter: 2018Q3

REPORT INFORMATION
  Report Type: Spontaneous
  Country: US (occurrence: US)
  Receive Date: 20180802
  Receipt Date: 20180821
  Transmission Date: 20181010
  Serious: Yes (Other)
  Sender: FDA-Public Use
  Company Number: PHEH2018US031614

PATIENT
  Sex: Male
  Weight: 94.8 kg

DRUGS (1)
  1. TEGRETOL [Suspect]
     Active Substance: CARBAMAZEPINE
     Indication: PRODUCT USED FOR UNKNOWN INDICATION
     Dosage: 2 TSP, Q12H
     Route: 065

REACTIONS (4)
  - Nervousness [Unknown]
  - Dizziness [Unknown]
  - Dyskinesia [Unknown]
  - Ear infection [Unknown]
